FAERS Safety Report 8532291-X (Version None)
Quarter: 2012Q3

REPORT INFORMATION
  Report Type: 
  Country: None (occurrence: None)
  Receive Date: 20120724
  Receipt Date: 20120717
  Transmission Date: 20120928
  Serious: Yes (Death, Other)
  Sender: FDA-Public Use
  Company Number: US-BRISTOL-MYERS SQUIBB COMPANY-16773731

PATIENT
  Age: 55 Year
  Sex: Male

DRUGS (1)
  1. ORENCIA [Suspect]
     Dosage: LAST INF 15AUG11
     Route: 042
     Dates: start: 20071226

REACTIONS (3)
  - LUNG NEOPLASM [None]
  - DEATH [None]
  - CHRONIC OBSTRUCTIVE PULMONARY DISEASE [None]
